FAERS Safety Report 8958452 (Version 1)
Quarter: 2012Q4

REPORT INFORMATION
  Report Type: Spontaneous
  Country: US (occurrence: None)
  Receive Date: 20121205
  Receipt Date: 20121205
  Transmission Date: 20130627
  Serious: Yes (Life-Threatening)
  Sender: FDA-Public Use
  Company Number: None

PATIENT
  Age: 82 Year
  Sex: Male
  Weight: 74.2 kg

DRUGS (1)
  1. ARIPIPRAZOLE [Suspect]
     Indication: AGITATION
     Dosage: 2 mg MG  EVERY DAY  PO
     Route: 048
     Dates: start: 20120609, end: 20120725

REACTIONS (3)
  - Neuroleptic malignant syndrome [None]
  - Agitation [None]
  - Confusional state [None]
